FAERS Safety Report 10488351 (Version 1)
Quarter: 2014Q4

REPORT INFORMATION
  Report Type: Report from Study
  Country: DE (occurrence: DE)
  Receive Date: 20141002
  Receipt Date: 20141002
  Transmission Date: 20150528
  Serious: Yes (Other)
  Sender: FDA-Public Use
  Company Number: DE-AMGEN-DEUSL2014075216

PATIENT
  Sex: Female

DRUGS (1)
  1. PROLIA [Suspect]
     Active Substance: DENOSUMAB
     Indication: OSTEOPOROSIS POSTMENOPAUSAL
     Route: 065

REACTIONS (13)
  - Immobile [Unknown]
  - Hypertension [Unknown]
  - Spinal deformity [Unknown]
  - Back pain [Unknown]
  - Chronic obstructive pulmonary disease [Unknown]
  - Peptic ulcer [Unknown]
  - Gastrointestinal disorder [Unknown]
  - Asthenia [Unknown]
  - Groin pain [Unknown]
  - Liver disorder [Unknown]
  - Activities of daily living impaired [Unknown]
  - Body height decreased [Unknown]
  - Peripheral vascular disorder [Unknown]
